FAERS Safety Report 6264940-3 (Version None)
Quarter: 2009Q3

REPORT INFORMATION
  Report Type: 
  Country: None (occurrence: None)
  Receive Date: 20090713
  Receipt Date: 20071204
  Transmission Date: 20100115
  Serious: Yes (Hospitalization, Other)
  Sender: FDA-Public Use
  Company Number: US-ASTRAZENECA-2007UW02621

PATIENT
  Age: 17218 Day
  Sex: Male
  Weight: 96.2 kg

DRUGS (34)
  1. SEROQUEL [Suspect]
     Indication: SCHIZOAFFECTIVE DISORDER
     Route: 048
     Dates: start: 20000601
  2. SEROQUEL [Suspect]
     Indication: MENTAL DISORDER
     Route: 048
     Dates: start: 20000601
  3. SEROQUEL [Suspect]
     Route: 048
     Dates: start: 20000629, end: 20040709
  4. SEROQUEL [Suspect]
     Route: 048
     Dates: start: 20000629, end: 20040709
  5. SEROQUEL [Suspect]
     Route: 048
     Dates: start: 20000629, end: 20040709
  6. SEROQUEL [Suspect]
     Route: 048
     Dates: start: 20000629, end: 20040709
  7. SEROQUEL [Suspect]
     Route: 048
     Dates: start: 20040708, end: 20040724
  8. SEROQUEL [Suspect]
     Route: 048
     Dates: start: 20040708, end: 20040724
  9. SEROQUEL [Suspect]
     Route: 048
     Dates: start: 20040723, end: 20041023
  10. SEROQUEL [Suspect]
     Route: 048
     Dates: start: 20040723, end: 20041023
  11. SEROQUEL [Suspect]
     Route: 048
     Dates: start: 20040427
  12. SEROQUEL [Suspect]
     Route: 048
     Dates: start: 20040427
  13. SEROQUEL [Suspect]
     Route: 048
  14. SEROQUEL [Suspect]
     Route: 048
  15. HALDOL [Concomitant]
  16. RISPERDAL [Concomitant]
     Dates: start: 20000228
  17. RISPERDAL [Concomitant]
     Dosage: 2-3 MG BID
     Dates: start: 20000303, end: 20000313
  18. ZYPREXA [Concomitant]
     Indication: SCHIZOPHRENIA
     Dates: start: 19980107
  19. ENALAPRIL [Concomitant]
     Dates: start: 20040708, end: 20041008
  20. REMERON [Concomitant]
     Dates: start: 20040723, end: 20041023
  21. REMERON [Concomitant]
     Dates: start: 20040427
  22. WELLBUTRIN [Concomitant]
     Dates: start: 20040427
  23. THORAZINE [Concomitant]
  24. CELEXA [Concomitant]
  25. LISINOPRIL [Concomitant]
  26. HYDROCHLOROTHIAZIDE [Concomitant]
  27. MOTRIN [Concomitant]
  28. ALLEGY MEDS [Concomitant]
  29. CARISOPRODOL [Concomitant]
  30. ACTOS [Concomitant]
  31. MIRTAZAPINE [Concomitant]
  32. TRAZODONE [Concomitant]
  33. ETODOLAC [Concomitant]
  34. VIAGRA [Concomitant]

REACTIONS (19)
  - ASTHENIA [None]
  - BACK PAIN [None]
  - BLOOD CHOLESTEROL INCREASED [None]
  - CONVULSION [None]
  - DEPRESSION [None]
  - DIZZINESS [None]
  - ERECTILE DYSFUNCTION [None]
  - FEELING JITTERY [None]
  - INSOMNIA [None]
  - OBESITY [None]
  - PANIC ATTACK [None]
  - SCHIZOPHRENIA [None]
  - SCIATICA [None]
  - SOMNOLENCE [None]
  - SPINAL DISORDER [None]
  - TREMOR [None]
  - TYPE 2 DIABETES MELLITUS [None]
  - VISUAL ACUITY REDUCED [None]
  - WEIGHT DECREASED [None]
